FAERS Safety Report 20618103 (Version 1)
Quarter: 2022Q1

REPORT INFORMATION
  Report Type: Spontaneous
  Country: US (occurrence: US)
  Receive Date: 20220321
  Receipt Date: 20220321
  Transmission Date: 20220423
  Serious: No
  Sender: FDA-Public Use
  Company Number: US-PFIZER INC-202200355619

PATIENT
  Age: 58 Year
  Sex: Female
  Weight: 86.168 kg

DRUGS (4)
  1. DILANTIN [Suspect]
     Active Substance: PHENYTOIN
     Dosage: UNK
  2. DILANTIN [Suspect]
     Active Substance: PHENYTOIN
     Dosage: 500 MG, DAILY (5 CAPSULES BY MOUTH AT BEDTIME)
     Route: 048
     Dates: start: 199606
  3. OMEGA-3 FATTY ACIDS [Concomitant]
     Active Substance: OMEGA-3 FATTY ACIDS
     Dosage: 950 MG, 2X/DAY
     Dates: start: 201901
  4. TURMERIC + [Concomitant]
     Dosage: 660 MG, 3X/DAY
     Dates: start: 201701

REACTIONS (3)
  - Anticonvulsant drug level abnormal [Recovered/Resolved with Sequelae]
  - Balance disorder [Recovered/Resolved with Sequelae]
  - Dizziness [Not Recovered/Not Resolved]

NARRATIVE: CASE EVENT DATE: 20211129
